FAERS Safety Report 10413666 (Version 3)
Quarter: 2014Q3

REPORT INFORMATION
  Report Type: Report from Study
  Country: US (occurrence: US)
  Receive Date: 20140827
  Receipt Date: 20140912
  Transmission Date: 20150326
  Serious: Yes (Hospitalization, Other)
  Sender: FDA-Public Use
  Company Number: PHEH2014US010313

PATIENT
  Age: 12 Year
  Sex: Male
  Weight: 34.47 kg

DRUGS (2)
  1. TOBI [Suspect]
     Active Substance: TOBRAMYCIN
     Indication: CYSTIC FIBROSIS
     Dosage: 1 DF, BID
     Route: 055
  2. TOBI PODHALER [Suspect]
     Active Substance: TOBRAMYCIN
     Indication: CYSTIC FIBROSIS
     Dosage: 112 MG, BID
     Route: 055
     Dates: start: 2014, end: 201406

REACTIONS (8)
  - Chest pain [Unknown]
  - Breath sounds abnormal [Unknown]
  - Pulmonary function test decreased [Recovering/Resolving]
  - Aphagia [Unknown]
  - Pneumonia [Recovering/Resolving]
  - Asthenia [Unknown]
  - Malaise [Recovering/Resolving]
  - Weight decreased [Recovering/Resolving]

NARRATIVE: CASE EVENT DATE: 20140610
